FAERS Safety Report 7833771-2 (Version None)
Quarter: 2011Q4

REPORT INFORMATION
  Report Type: 
  Country: None (occurrence: None)
  Receive Date: 20111020
  Receipt Date: 20111006
  Transmission Date: 20120403
  Serious: Yes (Life-Threatening, Hospitalization)
  Sender: FDA-Public Use
  Company Number: TCI2011A03529

PATIENT
  Age: 62 Year
  Sex: Male

DRUGS (4)
  1. AMARYL [Concomitant]
  2. KINEX (EPALRESTAT) [Concomitant]
  3. BASEN OD (VOGLIBOSE) [Concomitant]
  4. ACTOS [Suspect]
     Indication: DIABETES MELLITUS
     Dosage: 15 MG (15 MG, 1 IN 1 D), PER ORAL
     Route: 048
     Dates: start: 20091023

REACTIONS (3)
  - BLADDER TRANSITIONAL CELL CARCINOMA [None]
  - HYPOAESTHESIA [None]
  - HYPERTENSION [None]
